FAERS Safety Report 6883160-2 (Version None)
Quarter: 2010Q3

REPORT INFORMATION
  Report Type: 
  Country: None (occurrence: None)
  Receive Date: 20100727
  Receipt Date: 20070917
  Transmission Date: 20110219
  Serious: Yes (Other)
  Sender: FDA-Public Use
  Company Number: US-PFIZER INC-2006080007

PATIENT
  Sex: Male
  Weight: 78.9 kg

DRUGS (1)
  1. CELEBREX [Suspect]
     Indication: BACK PAIN
     Dates: end: 20050101

REACTIONS (1)
  - CEREBROVASCULAR ACCIDENT [None]
